FAERS Safety Report 12429743 (Version 1)
Quarter: 2016Q2

REPORT INFORMATION
  Report Type: Spontaneous
  Country: US (occurrence: US)
  Receive Date: 20160602
  Receipt Date: 20160602
  Transmission Date: 20160815
  Serious: No
  Sender: FDA-Public Use
  Company Number: GXBR2016US001923

PATIENT
  Age: 52 Year
  Sex: Female

DRUGS (1)
  1. ZARXIO [Suspect]
     Active Substance: FILGRASTIM-SNDZ
     Indication: NEUTROPENIA
     Dosage: 300 / 0.5 UG/ML, MON/WED/FRI PRN WHEN ANC IS {1000
     Route: 065

REACTIONS (2)
  - Injection site haemorrhage [Unknown]
  - Injection site bruising [Unknown]

NARRATIVE: CASE EVENT DATE: 20160330
